FAERS Safety Report 8997979 (Version 1)
Quarter: 2013Q1

REPORT INFORMATION
  Report Type: Spontaneous
  Country: AR (occurrence: AR)
  Receive Date: 20130104
  Receipt Date: 20130104
  Transmission Date: 20140127
  Serious: Yes (Hospitalization)
  Sender: FDA-Public Use
  Company Number: PHHY2013AR001232

PATIENT
  Sex: Male

DRUGS (2)
  1. EXFORGE D [Suspect]
     Indication: HYPERTENSION
     Dosage: 1 DF (VALSARTAN160/AMLODIPINE 5/HYDROCHLOROTHIAZIDE 12.5MG), DAILY
     Route: 048
     Dates: start: 201212, end: 20121228
  2. EXFORGE D [Suspect]
     Dosage: 1 DF (160/5/12.5 MG), DAILY
     Route: 048
     Dates: start: 20130103

REACTIONS (2)
  - General physical health deterioration [Recovered/Resolved]
  - Asthenia [Recovered/Resolved]
